FAERS Safety Report 5691186-X (Version None)
Quarter: 2008Q2

REPORT INFORMATION
  Report Type: 
  Country: None (occurrence: None)
  Receive Date: 20080401
  Receipt Date: 20080401
  Transmission Date: 20081010
  Serious: No
  Sender: FDA-Public Use
  Company Number: None

PATIENT
  Sex: Female
  Weight: 64.4108 kg

DRUGS (1)
  1. SINGULAIR [Suspect]
     Indication: ASTHMA
     Dosage: 10MG. TAB ONCE AT NIGHT PO
     Route: 048
     Dates: start: 20070930, end: 20080330

REACTIONS (1)
  - WEIGHT INCREASED [None]
